FAERS Safety Report 9399245 (Version 1)
Quarter: 2013Q3

REPORT INFORMATION
  Report Type: Spontaneous
  Country: IT (occurrence: IT)
  Receive Date: 20130710
  Receipt Date: 20130710
  Transmission Date: 20140515
  Serious: Yes (Other)
  Sender: FDA-Public Use
  Company Number: 2013000151

PATIENT
  Age: 55 Year
  Sex: Female

DRUGS (2)
  1. ACEON (PERINDOPRIL ERBUMINE) TABLET [Suspect]
     Indication: HYPERTENSION
     Route: 048
     Dates: start: 20130329, end: 20130529
  2. LASIX (FUROSEMIDE) [Concomitant]

REACTIONS (3)
  - Syncope [None]
  - Confusional state [None]
  - Dizziness [None]
